FAERS Safety Report 25587444 (Version 1)
Quarter: 2025Q3

REPORT INFORMATION
  Report Type: Spontaneous
  Country: IL (occurrence: IL)
  Receive Date: 20250721
  Receipt Date: 20250721
  Transmission Date: 20251021
  Serious: Yes (Other)
  Sender: ALNYLAM PHARMACEUTICALS
  Company Number: IL-ALNYLAM PHARMACEUTICALS, INC.-ALN-2025-004381

PATIENT

DRUGS (5)
  1. OXLUMO [Suspect]
     Active Substance: LUMASIRAN
     Indication: Primary hyperoxaluria
     Dosage: 3 MILLIGRAM/KILOGRAM, Q3M
     Route: 065
     Dates: start: 2019, end: 2019
  2. CITRATE [Concomitant]
     Active Substance: CITRIC ACID MONOHYDRATE
     Indication: Nephrolithiasis
     Route: 065
     Dates: start: 2021
  3. MAGNESIUM [Concomitant]
     Active Substance: MAGNESIUM
     Indication: Nephrolithiasis
     Route: 065
     Dates: start: 2021
  4. IRON [Concomitant]
     Active Substance: IRON
     Indication: Nephrolithiasis
     Route: 065
     Dates: start: 2021
  5. VITAMIN D [Concomitant]
     Active Substance: VITAMIN D NOS
     Indication: Nephrolithiasis
     Route: 065
     Dates: start: 2021

REACTIONS (1)
  - Nephrolithiasis [Recovered/Resolved]

NARRATIVE: CASE EVENT DATE: 20240801
